FAERS Safety Report 14845172 (Version 2)
Quarter: 2018Q2

REPORT INFORMATION
  Report Type: Spontaneous
  Country: US (occurrence: US)
  Receive Date: 20180504
  Receipt Date: 20180516
  Transmission Date: 20180711
  Serious: Yes (Hospitalization)
  Sender: FDA-Public Use
  Company Number: US-BIOGEN-2018BI00569403

PATIENT
  Age: 4 Month
  Sex: Male

DRUGS (2)
  1. SPINRAZA [Suspect]
     Active Substance: NUSINERSEN
     Dosage: FOURTH LOADING DOSE; 25 DAYS AFTER THE THIRD LOADING DOSE
     Route: 037
     Dates: start: 20180409
  2. SPINRAZA [Suspect]
     Active Substance: NUSINERSEN
     Indication: SPINAL MUSCULAR ATROPHY
     Dosage: SECOND LOADING DOSE ON 01 MAR 2018, THIRD LOADING DOSE ON 15 MAR 2018
     Route: 037
     Dates: start: 20180215, end: 20180315

REACTIONS (2)
  - Prescribed overdose [Recovered/Resolved]
  - Hydrocephalus [Not Recovered/Not Resolved]

NARRATIVE: CASE EVENT DATE: 20180409
